FAERS Safety Report 8547755-2 (Version None)
Quarter: 2012Q3

REPORT INFORMATION
  Report Type: 
  Country: None (occurrence: None)
  Receive Date: 20120727
  Receipt Date: 20111212
  Transmission Date: 20120928
  Serious: Yes (Other)
  Sender: FDA-Public Use
  Company Number: US-ASTRAZENECA-2011SE75471

PATIENT
  Sex: Female

DRUGS (3)
  1. SEROQUEL [Suspect]
     Route: 048
  2. DIAZEPAM [Concomitant]
  3. GABAPENTIN [Concomitant]

REACTIONS (7)
  - SYNCOPE [None]
  - VOMITING [None]
  - HYPOTENSION [None]
  - TEETH BRITTLE [None]
  - ASPHYXIA [None]
  - BLOOD GLUCOSE INCREASED [None]
  - HYPOVENTILATION [None]
